FAERS Safety Report 8815570 (Version 1)
Quarter: 2012Q4

REPORT INFORMATION
  Report Type: 
  Country: BR (occurrence: BR)
  Receive Date: 20120928
  Receipt Date: 20120928
  Transmission Date: 20130627
  Serious: Yes (Other)
  Sender: FDA-Public Use
  Company Number: BR-JNJFOC-20120811603

PATIENT
  Age: 69 None
  Sex: Male
  Weight: 67 kg

DRUGS (3)
  1. REMICADE [Suspect]
     Indication: PSORIASIS
     Dosage: 18 total infusions
     Route: 042
     Dates: start: 20090106, end: 20110704
  2. LOSARTAN [Concomitant]
     Route: 065
     Dates: start: 2000
  3. ATENOLOL [Concomitant]
     Route: 065

REACTIONS (5)
  - Tuberculosis [Unknown]
  - Infusion related reaction [Not Recovered/Not Resolved]
  - Abdominal pain [Recovered/Resolved]
  - Vomiting [Recovered/Resolved]
  - Pruritus [Not Recovered/Not Resolved]
